FAERS Safety Report 8592763-9 (Version None)
Quarter: 2012Q3

REPORT INFORMATION
  Report Type: 
  Country: None (occurrence: None)
  Receive Date: 20120814
  Receipt Date: 20120803
  Transmission Date: 20120928
  Serious: Yes (Other)
  Sender: FDA-Public Use
  Company Number: US-ASTRAZENECA-2010SE21304

PATIENT
  Age: 68 Year
  Sex: Female

DRUGS (5)
  1. SYNTHROID [Suspect]
     Route: 065
  2. ARIMIDEX [Concomitant]
  3. CRESTOR [Suspect]
     Route: 048
  4. LEXAPRO [Suspect]
     Route: 065
  5. NEXIUM [Suspect]
     Route: 048

REACTIONS (7)
  - PAIN IN EXTREMITY [None]
  - THYROID DISORDER [None]
  - MENISCUS LESION [None]
  - BREAST CANCER FEMALE [None]
  - PANIC ATTACK [None]
  - GASTROOESOPHAGEAL REFLUX DISEASE [None]
  - ANXIETY [None]
